FAERS Safety Report 25194349 (Version 9)
Quarter: 2025Q4

REPORT INFORMATION
  Report Type: Report from Study
  Country: EU (occurrence: EU)
  Receive Date: 20250414
  Receipt Date: 20251225
  Transmission Date: 20260118
  Serious: Yes (Hospitalization)
  Sender: ABBVIE
  Company Number: EU-ABBVIE-6204227

PATIENT
  Age: 57 Year
  Sex: Male

DRUGS (6)
  1. FOSCARBIDOPA\FOSLEVODOPA [Suspect]
     Active Substance: FOSCARBIDOPA\FOSLEVODOPA
     Indication: Parkinson^s disease
     Dosage: CRN 0.28 ML/H, CR 0.37 ML/H, CRH 0.42 ML/H, ED 0.15 ML.
     Route: 058
     Dates: start: 2025, end: 2025
  2. FOSCARBIDOPA\FOSLEVODOPA [Suspect]
     Active Substance: FOSCARBIDOPA\FOSLEVODOPA
     Dosage: CRN 0.25 ML/H, CR 0.32 ML/H, CRH 0.38 ML/H, ED 0.15 ML 01:00 H BLOCKING PERIOD
     Route: 058
     Dates: start: 20250326, end: 20250326
  3. FOSCARBIDOPA\FOSLEVODOPA [Suspect]
     Active Substance: FOSCARBIDOPA\FOSLEVODOPA
     Dosage: CRN: 0.27 ML/H, CR: 0.34 ML/H, CRH: 0.40 ML/H, ED: 0.15 ML 01:00 H BLOCKING PERIOD.
     Route: 058
     Dates: start: 20250327, end: 20250327
  4. FOSCARBIDOPA\FOSLEVODOPA [Suspect]
     Active Substance: FOSCARBIDOPA\FOSLEVODOPA
     Dosage: CRN 0.33 ML/H, CR 0.36 ML/H, CRH 0.42 ML/H, ED 0.15 ML 01:00 H BLOCKING TIME. BLOCKING PERIOD.
     Route: 058
     Dates: start: 20250328, end: 202503
  5. FOSCARBIDOPA\FOSLEVODOPA [Suspect]
     Active Substance: FOSCARBIDOPA\FOSLEVODOPA
     Dosage: CRN 0.28 ML/H, CR 0.37 ML/H, CRH 0.39 ML/H, ED 0.15 ML. ???.
     Route: 058
     Dates: start: 2025
  6. FOSCARBIDOPA\FOSLEVODOPA [Suspect]
     Active Substance: FOSCARBIDOPA\FOSLEVODOPA
     Dosage: CRN 0.28 ML/H, CR 0.37 ML/H, CRH 0.39 ML/H, ED 0.15 ML. ?STOPPED CRH 0.39 ML/H
     Route: 058
     Dates: start: 20250821, end: 2025

REACTIONS (16)
  - Nephrolithiasis [Unknown]
  - Tremor [Unknown]
  - Hallucination [Unknown]
  - Tremor [Unknown]
  - Muscle spasms [Unknown]
  - Restless legs syndrome [Unknown]
  - Muscle spasms [Not Recovered/Not Resolved]
  - Hyperkinesia [Unknown]
  - Poor quality sleep [Unknown]
  - Restlessness [Unknown]
  - Dyskinesia [Unknown]
  - Compulsions [Recovering/Resolving]
  - Soliloquy [Not Recovered/Not Resolved]
  - Infusion site erythema [Recovering/Resolving]
  - Infusion site erythema [Recovering/Resolving]
  - Infusion site inflammation [Not Recovered/Not Resolved]

NARRATIVE: CASE EVENT DATE: 20250101
